FAERS Safety Report 15266046 (Version 2)
Quarter: 2018Q3

REPORT INFORMATION
  Report Type: Spontaneous
  Country: US (occurrence: US)
  Receive Date: 20180810
  Receipt Date: 20180814
  Transmission Date: 20181010
  Serious: No
  Sender: FDA-Public Use
  Company Number: US-PFIZER INC-2018320992

PATIENT
  Sex: Male
  Weight: 78.47 kg

DRUGS (1)
  1. LYRICA [Suspect]
     Active Substance: PREGABALIN
     Indication: NEURALGIA
     Dosage: 75 MG, TWICE A DAY
     Route: 048
     Dates: start: 20180806

REACTIONS (5)
  - Dry mouth [Recovering/Resolving]
  - Hunger [Recovering/Resolving]
  - Increased appetite [Unknown]
  - Insomnia [Recovering/Resolving]
  - Somnolence [Recovering/Resolving]

NARRATIVE: CASE EVENT DATE: 20180807
